FAERS Safety Report 17451911 (Version 1)
Quarter: 2020Q1

REPORT INFORMATION
  Report Type: Spontaneous
  Country: FR (occurrence: FR)
  Receive Date: 20200224
  Receipt Date: 20200224
  Transmission Date: 20200409
  Serious: Yes (Other)
  Sender: FDA-Public Use
  Company Number: FR-PFIZER INC-2020074993

PATIENT
  Age: 79 Year
  Sex: Male

DRUGS (2)
  1. ZITHROMAX [Suspect]
     Active Substance: AZITHROMYCIN DIHYDRATE
     Indication: LUNG DISORDER
     Dosage: 250 MG, DAILY
     Route: 048
     Dates: start: 20200123, end: 20200127
  2. INVANZ [Suspect]
     Active Substance: ERTAPENEM SODIUM
     Indication: LUNG DISORDER
     Dosage: 1 G, DAILY
     Route: 042
     Dates: start: 20200123, end: 20200129

REACTIONS (1)
  - Confusional state [Recovered/Resolved]

NARRATIVE: CASE EVENT DATE: 20200126
